FAERS Safety Report 4659028-9 (Version None)
Quarter: 2005Q2

REPORT INFORMATION
  Report Type: 
  Country: None (occurrence: None)
  Receive Date: 20050511
  Receipt Date: 20050505
  Transmission Date: 20051028
  Serious: Yes (Hospitalization)
  Sender: FDA-Public Use
  Company Number: ES-GLAXOSMITHKLINE-B0380319A

PATIENT
  Age: 76 Year
  Sex: Male

DRUGS (1)
  1. AUGMENTIN [Suspect]
     Indication: PERIODONTITIS
     Dosage: 2TAB PER DAY
     Route: 048
     Dates: start: 20050410, end: 20050401

REACTIONS (4)
  - AORTIC ANEURYSM [None]
  - HEPATIC FAILURE [None]
  - JAUNDICE [None]
  - MALAISE [None]
